FAERS Safety Report 8308646-5 (Version None)
Quarter: 2012Q2

REPORT INFORMATION
  Report Type: 
  Country: None (occurrence: None)
  Receive Date: 20120424
  Receipt Date: 20120411
  Transmission Date: 20120825
  Serious: Yes (Death, Other)
  Sender: FDA-Public Use
  Company Number: PHHY2011JP81353

PATIENT
  Sex: Female

DRUGS (4)
  1. ITRAREEL [Concomitant]
     Dosage: 100 MG, UNK
     Route: 048
     Dates: start: 20100702, end: 20100728
  2. LOWPSTON [Concomitant]
     Dosage: 20 MG, UNK
     Route: 048
     Dates: start: 20090716
  3. VALSARTAN, AMLODIPINE [Suspect]
     Indication: HYPERTENSION
     Dosage: 1 DF, DAILY
     Route: 048
     Dates: start: 20100702
  4. CARBAMAZEPINE [Concomitant]
     Dosage: 200 MG, UNK
     Route: 048
     Dates: start: 20100615

REACTIONS (6)
  - SYSTEMIC CANDIDA [None]
  - ASPARTATE AMINOTRANSFERASE INCREASED [None]
  - BLOOD PRESSURE DIASTOLIC DECREASED [None]
  - HEPATIC FUNCTION ABNORMAL [None]
  - GAMMA-GLUTAMYLTRANSFERASE INCREASED [None]
  - ALANINE AMINOTRANSFERASE INCREASED [None]
